FAERS Safety Report 12505706 (Version 2)
Quarter: 2016Q3

REPORT INFORMATION
  Report Type: Spontaneous
  Country: JP (occurrence: JP)
  Receive Date: 20160628
  Receipt Date: 20160720
  Transmission Date: 20161109
  Serious: Yes (Hospitalization, Disabling)
  Sender: FDA-Public Use
  Company Number: JP-DSJP-DSJ-2016-106639

PATIENT

DRUGS (21)
  1. METININ [Concomitant]
     Dosage: 50 MG, QD
     Route: 048
     Dates: start: 201104, end: 20110627
  2. PAXIL [Concomitant]
     Active Substance: PAROXETINE HYDROCHLORIDE
     Dosage: 10 MG, QD
     Route: 065
     Dates: start: 20111102, end: 20111110
  3. OLMETEC [Suspect]
     Active Substance: OLMESARTAN MEDOXOMIL
  4. CORINAEL [Concomitant]
     Active Substance: NIFEDIPINE
     Dosage: 40 MG, QD
     Route: 048
     Dates: start: 2009, end: 20110627
  5. NORVASC [Concomitant]
     Active Substance: AMLODIPINE BESYLATE
     Dosage: 10 MG, QD
     Route: 048
     Dates: start: 20111227, end: 20120209
  6. BETAMAC                            /00314301/ [Concomitant]
     Dosage: 50 MG, TID
     Route: 048
     Dates: start: 20110628, end: 20111222
  7. PAXIL [Concomitant]
     Active Substance: PAROXETINE HYDROCHLORIDE
     Dosage: 5 MG, QD
     Route: 065
     Dates: start: 20111020, end: 20111102
  8. OLMETEC [Suspect]
     Active Substance: OLMESARTAN MEDOXOMIL
     Dosage: UNK
     Route: 048
     Dates: start: 200805
  9. OLMETEC [Suspect]
     Active Substance: OLMESARTAN MEDOXOMIL
     Dosage: 30 MG, QD
     Route: 048
     Dates: end: 20110627
  10. OLMETEC [Suspect]
     Active Substance: OLMESARTAN MEDOXOMIL
     Dosage: 10 MG, QD
     Route: 048
     Dates: start: 20111227, end: 20120309
  11. CORINAEL [Concomitant]
     Active Substance: NIFEDIPINE
     Indication: HYPERTENSION
     Dosage: 40 MG, QD
     Route: 048
     Dates: start: 200604, end: 20110627
  12. METININ [Concomitant]
     Indication: HYPERTENSION
     Dosage: 50 MG, QD
     Route: 048
     Dates: start: 2009, end: 20110627
  13. RIKKUNSHITO                        /08041001/ [Concomitant]
     Active Substance: HERBALS
     Dosage: 2.5 G, TID
     Route: 048
     Dates: start: 20110628, end: 20111222
  14. DOXAZON [Concomitant]
     Indication: HYPERTENSION
     Dosage: 2 MG, QD
     Route: 048
     Dates: start: 2009, end: 20110627
  15. DOXAZON [Concomitant]
     Dosage: 2 MG, QD
     Route: 048
     Dates: start: 201104, end: 20110627
  16. OLMETEC [Suspect]
     Active Substance: OLMESARTAN MEDOXOMIL
     Indication: HYPERTENSION
     Dosage: 30 MG, QD
     Route: 048
     Dates: start: 200805, end: 201203
  17. NORVASC [Concomitant]
     Active Substance: AMLODIPINE BESYLATE
     Dosage: UNK
     Route: 065
     Dates: start: 2005, end: 200604
  18. NORVASC [Concomitant]
     Active Substance: AMLODIPINE BESYLATE
     Dosage: 5 MG, QD
     Route: 065
     Dates: start: 20110830, end: 201110
  19. OLMETEC [Suspect]
     Active Substance: OLMESARTAN MEDOXOMIL
     Dosage: 10 MG, QD
     Route: 048
     Dates: start: 20110830, end: 201110
  20. NAUZELIN [Concomitant]
     Active Substance: DOMPERIDONE
     Dosage: 10 MG, BID
     Route: 065
     Dates: start: 20110628, end: 20111110
  21. NORVASC [Concomitant]
     Active Substance: AMLODIPINE BESYLATE
     Dosage: 2.5 MG, QD
     Route: 048
     Dates: start: 201207

REACTIONS (2)
  - Wernicke-Korsakoff syndrome [Recovered/Resolved with Sequelae]
  - Malabsorption [Recovered/Resolved]

NARRATIVE: CASE EVENT DATE: 201102
